FAERS Safety Report 8891603 (Version 1)
Quarter: 2012Q4

REPORT INFORMATION
  Report Type: 
  Country: US (occurrence: US)
  Receive Date: 20121107
  Receipt Date: 20121107
  Transmission Date: 20130627
  Serious: No
  Sender: FDA-Public Use
  Company Number: US-AMGEN-USASP2011058959

PATIENT
  Age: 56 Year

DRUGS (1)
  1. ENBREL [Suspect]
     Indication: RHEUMATOID ARTHRITIS
     Dosage: 50 mg, qwk
     Dates: start: 2010, end: 20111029

REACTIONS (4)
  - Pain [Recovered/Resolved]
  - Inflammation [Recovered/Resolved]
  - Hypoaesthesia [Recovered/Resolved]
  - Respiration abnormal [Unknown]
